FAERS Safety Report 8513944-6 (Version None)
Quarter: 2012Q3

REPORT INFORMATION
  Report Type: 
  Country: None (occurrence: None)
  Receive Date: 20120717
  Receipt Date: 20120705
  Transmission Date: 20120928
  Serious: Yes (Other)
  Sender: FDA-Public Use
  Company Number: JP-009507513-1206USA04765

PATIENT

DRUGS (12)
  1. DEXAMETHASONE [Suspect]
     Dosage: 4 MG, Q6H
  2. DEXAMETHASONE [Suspect]
     Dosage: DIVIDED DOSE FREQUENCY U
  3. DEXAMETHASONE [Suspect]
     Dosage: DIVIDED DOSE FREQUENCY U
  4. DEXAMETHASONE [Suspect]
     Dosage: DIVIDED DOSE FREQUENCY U
  5. MEROPENEM [Concomitant]
     Dosage: DIVIDED DOSE FREQUENCY U
  6. DEXAMETHASONE [Suspect]
     Dosage: DIVIDED DOSE FREQUENCY U
  7. LINEZOLID [Concomitant]
     Dosage: 600 MG, BID
     Route: 048
  8. MEROPENEM [Concomitant]
     Dosage: 2 G, TID
  9. DEXAMETHASONE [Suspect]
     Dosage: DIVIDED DOSE FREQUENCY U
  10. DEXAMETHASONE [Suspect]
     Dosage: DIVIDED DOSE FREQUENCY U
  11. DEXAMETHASONE [Suspect]
     Dosage: FROM DAY 40 TO DAY 109
  12. CEFTRIAXONE SODIUM [Concomitant]
     Dosage: 2 G, BID

REACTIONS (7)
  - THALAMIC INFARCTION [None]
  - VASCULITIS CEREBRAL [None]
  - CEREBRAL INFARCTION [None]
  - ISCHAEMIC STROKE [None]
  - CEREBRAL ARTERY OCCLUSION [None]
  - CEREBROVASCULAR SPASM [None]
  - CEREBRAL ARTERY STENOSIS [None]
